FAERS Safety Report 17439638 (Version 1)
Quarter: 2020Q1

REPORT INFORMATION
  Report Type: Spontaneous
  Country: US (occurrence: US)
  Receive Date: 20200220
  Receipt Date: 20200220
  Transmission Date: 20200409
  Serious: No
  Sender: FDA-Public Use
  Company Number: US-GLAXOSMITHKLINE-US2020028972

PATIENT
  Sex: Male

DRUGS (2)
  1. FLONASE [Suspect]
     Active Substance: FLUTICASONE PROPIONATE
     Indication: ANOSMIA
     Dosage: 1 SPARY
     Dates: start: 20200217
  2. FLONASE [Suspect]
     Active Substance: FLUTICASONE PROPIONATE
     Indication: AGEUSIA

REACTIONS (2)
  - Product use in unapproved indication [Unknown]
  - Off label use [Unknown]
